FAERS Safety Report 14354929 (Version 1)
Quarter: 2018Q1

REPORT INFORMATION
  Report Type: Spontaneous
  Country: SA (occurrence: SA)
  Receive Date: 20180105
  Receipt Date: 20180105
  Transmission Date: 20180509
  Serious: Yes (Hospitalization)
  Sender: FDA-Public Use
  Company Number: SA-LPDUSPRD-20171790

PATIENT
  Age: 32 Year
  Sex: Female
  Weight: 73 kg

DRUGS (1)
  1. FERINJECT [Suspect]
     Active Substance: FERRIC CARBOXYMALTOSE
     Dosage: 1000 MG
     Route: 041
     Dates: start: 20171026

REACTIONS (11)
  - Pain in extremity [Unknown]
  - Overdose [Unknown]
  - Cough [Recovered/Resolved]
  - Angioedema [Recovered/Resolved]
  - Rash [Recovered/Resolved]
  - Infusion site discolouration [Recovered/Resolved]
  - Dyspnoea [Recovered/Resolved]
  - Abdominal pain [Recovered/Resolved]
  - Tachycardia [Recovered/Resolved]
  - Anxiety [Recovered/Resolved]
  - Flushing [Recovered/Resolved]

NARRATIVE: CASE EVENT DATE: 20171026
